FAERS Safety Report 6849658-8 (Version None)
Quarter: 2010Q3

REPORT INFORMATION
  Report Type: 
  Country: None (occurrence: None)
  Receive Date: 20100716
  Receipt Date: 20071126
  Transmission Date: 20110219
  Serious: No
  Sender: FDA-Public Use
  Company Number: US-PFIZER INC-2007083964

PATIENT
  Sex: Male
  Weight: 127.3 kg

DRUGS (5)
  1. CHANTIX [Suspect]
     Indication: SMOKING CESSATION THERAPY
     Dates: start: 20070924, end: 20070929
  2. METFORMIN HCL [Concomitant]
  3. LESCOL [Concomitant]
  4. COREG [Concomitant]
  5. ALL OTHER THERAPEUTIC PRODUCTS [Concomitant]

REACTIONS (6)
  - CRYING [None]
  - DEPRESSED MOOD [None]
  - DEPRESSION [None]
  - INSOMNIA [None]
  - LACRIMATION INCREASED [None]
  - NEGATIVE THOUGHTS [None]
